FAERS Safety Report 9688979 (Version 1)
Quarter: 2013Q4

REPORT INFORMATION
  Report Type: Spontaneous
  Country: GB (occurrence: GB)
  Receive Date: 20131114
  Receipt Date: 20131114
  Transmission Date: 20140711
  Serious: Yes (Hospitalization)
  Sender: FDA-Public Use
  Company Number: GB-VIIV HEALTHCARE LIMITED-B0939440A

PATIENT
  Age: 53 Year
  Sex: Male

DRUGS (3)
  1. COMBIVIR [Suspect]
     Indication: HIV INFECTION
     Dosage: 2IUAX PER DAY
     Route: 048
     Dates: start: 2000, end: 20131010
  2. SUSTIVA [Suspect]
     Indication: HIV INFECTION
     Dosage: 600MG PER DAY
     Route: 048
     Dates: start: 2000, end: 20131010
  3. ACICLOVIR [Concomitant]

REACTIONS (1)
  - Pancreatitis necrotising [Recovering/Resolving]
